FAERS Safety Report 4899500-X (Version None)
Quarter: 2006Q1

REPORT INFORMATION
  Report Type: 
  Country: None (occurrence: None)
  Receive Date: 20060131
  Receipt Date: 20051124
  Transmission Date: 20060701
  Serious: Yes (Life-Threatening, Hospitalization)
  Sender: FDA-Public Use
  Company Number: 2005P1000582

PATIENT
  Age: 58 Year
  Sex: Male

DRUGS (14)
  1. NICARDIPINE HYDROCHLORIDE [Suspect]
     Indication: HYPERTENSION
     Dosage: IV
     Route: 042
     Dates: end: 20051031
  2. DILTIAZEM [Suspect]
     Indication: AORTIC DISSECTION
     Dosage: 1.5 MG; ONCE; IV
     Route: 042
     Dates: start: 20051031, end: 20051031
  3. CARVEDILOL [Suspect]
     Indication: HYPERTENSION
     Dosage: 10 MG; BID; PO
     Route: 048
     Dates: start: 20051018, end: 20051031
  4. DILTIAZEM [Suspect]
     Indication: HYPERTENSION
     Dosage: 1.5 MG; QD; IV
     Route: 042
     Dates: start: 20051031, end: 20051031
  5. AMLODIPINE [Suspect]
     Indication: HYPERTENSION
     Dosage: 5 MG; BID; ORAL
     Route: 048
     Dates: start: 20051017, end: 20051031
  6. NIFEDIPINE [Suspect]
     Indication: HYPERTENSION
     Dosage: 20 MG; TID; PO
     Route: 048
     Dates: start: 20051018, end: 20051031
  7. MANIDIPINE (MANIDIPINE) [Suspect]
     Indication: HYPERTENSION
     Dosage: 20 MG; BID; ORAL
     Route: 048
     Dates: start: 20051021, end: 20051031
  8. DOXAZOSIN (DOXAZOSIN) [Suspect]
     Indication: HYPERTENSION
     Dosage: 4 MG; BID; ORAL
     Route: 048
     Dates: start: 20051021, end: 20051031
  9. CARVEDILOL [Concomitant]
  10. AMLODIPINE [Concomitant]
  11. ADALAT [Concomitant]
  12. CALSLOT [Concomitant]
  13. CARDENALIN [Concomitant]
  14. DILTIAZEM HCL [Concomitant]

REACTIONS (12)
  - CARDIAC ARREST [None]
  - CARDIO-RESPIRATORY ARREST [None]
  - COMA [None]
  - DEPRESSED LEVEL OF CONSCIOUSNESS [None]
  - DISEASE PROGRESSION [None]
  - ELECTROMECHANICAL DISSOCIATION [None]
  - HYPONATRAEMIA [None]
  - INFUSION SITE ERYTHEMA [None]
  - INFUSION SITE PAIN [None]
  - INFUSION SITE SWELLING [None]
  - PHLEBITIS [None]
  - RENAL FAILURE [None]
